FAERS Safety Report 8161150-X (Version None)
Quarter: 2012Q1

REPORT INFORMATION
  Report Type: 
  Country: None (occurrence: None)
  Receive Date: 20120224
  Receipt Date: 20120220
  Transmission Date: 20120608
  Serious: No
  Sender: FDA-Public Use
  Company Number: US-PFIZER INC-2012045598

PATIENT
  Sex: Male
  Weight: 68.027 kg

DRUGS (2)
  1. CIALIS [Suspect]
     Indication: ERECTILE DYSFUNCTION
     Dosage: 40 MG, 2X/WEEK
     Route: 048
     Dates: start: 20110101
  2. VIAGRA [Suspect]
     Indication: ERECTILE DYSFUNCTION
     Dosage: 100 MG, 3X/WEEK
     Route: 048
     Dates: end: 20110601

REACTIONS (1)
  - DRUG INEFFECTIVE [None]
